FAERS Safety Report 9563871 (Version 1)
Quarter: 2013Q1

REPORT INFORMATION
  Report Type: Spontaneous
  Country: US (occurrence: None)
  Receive Date: 20121207
  Receipt Date: 20121207
  Transmission Date: 20140127
  Serious: Yes (Other)
  Sender: FDA-Public Use
  Company Number: 1230551

PATIENT
  Age: 54 Year
  Sex: Male

DRUGS (7)
  1. DIAZEPAM [Suspect]
     Indication: SEDATION
     Dosage: 10 MG, X 1, INTRAVENOUS
     Dates: start: 20120301, end: 20120301
  2. MEPERIDINE HCL INJECTION (PETHIDINE HYDROCHLORIDE) [Concomitant]
  3. MORPHINE SULFATE INJ USP [Concomitant]
  4. PROPOFOL INJECTABLE EMULSION 1% (PROPOFOL, PROPOFOL) (PROPOFOL, PROPOFOL) [Concomitant]
  5. KETOROLAC TROMETHAMINE INJECTION, USP [Concomitant]
  6. FENTANYL [Concomitant]
  7. ZEMURON [Concomitant]

REACTIONS (1)
  - Thrombophlebitis superficial [None]
